FAERS Safety Report 19260481 (Version 3)
Quarter: 2021Q2

REPORT INFORMATION
  Report Type: Report from Study
  Country: US (occurrence: US)
  Receive Date: 20210514
  Receipt Date: 20210618
  Transmission Date: 20210717
  Serious: Yes (Hospitalization)
  Sender: FDA-Public Use
  Company Number: US-ADVANZ PHARMA-202105003272

PATIENT

DRUGS (57)
  1. SIROLIMUS. [Suspect]
     Active Substance: SIROLIMUS
     Dosage: 0.2 MG, BID
     Route: 050
     Dates: start: 20210310, end: 20210312
  2. SIROLIMUS. [Suspect]
     Active Substance: SIROLIMUS
     Dosage: 0.15 MG, BID
     Route: 050
     Dates: start: 20210320, end: 20210419
  3. TACROLIMUS. [Suspect]
     Active Substance: TACROLIMUS
     Dosage: 1.25 MG, SINGLE
     Route: 050
     Dates: start: 20210315, end: 20210315
  4. TACROLIMUS. [Suspect]
     Active Substance: TACROLIMUS
     Dosage: 1 MG, SINGLE
     Route: 050
     Dates: start: 20210315, end: 20210315
  5. TACROLIMUS. [Suspect]
     Active Substance: TACROLIMUS
     Dosage: 0.6 MG, BID
     Route: 050
     Dates: start: 20210405, end: 20210407
  6. TACROLIMUS. [Suspect]
     Active Substance: TACROLIMUS
     Dosage: 0.7 MG, SINGLE
     Route: 050
     Dates: start: 20210408, end: 20210408
  7. DEXAMETHASONE. [Suspect]
     Active Substance: DEXAMETHASONE
     Indication: STOMATITIS
     Dosage: UNK, QID (1 SWAB APPLICATION)
     Route: 048
     Dates: start: 20210420
  8. DEXAMETHASONE. [Suspect]
     Active Substance: DEXAMETHASONE
     Indication: ORAL CANDIDIASIS
     Dosage: 18 MG, SINGLE
     Route: 042
     Dates: start: 20210512, end: 20210512
  9. DIPHENHYDRAMINE. [Concomitant]
     Active Substance: DIPHENHYDRAMINE
     Dosage: UNK
     Dates: start: 20090214
  10. RIBOFLAVIN [Concomitant]
     Active Substance: RIBOFLAVIN
     Dosage: UNK
     Dates: start: 2014
  11. ACETAMINOPHEN. [Concomitant]
     Active Substance: ACETAMINOPHEN
     Dosage: UNK
     Dates: start: 2011
  12. COLECALCIFEROL [Concomitant]
     Active Substance: CHOLECALCIFEROL
     Dosage: UNK
     Dates: start: 2012
  13. SIROLIMUS. [Suspect]
     Active Substance: SIROLIMUS
     Dosage: 0.15 MG, SINGLE
     Route: 050
     Dates: start: 20210420, end: 20210420
  14. TACROLIMUS. [Suspect]
     Active Substance: TACROLIMUS
     Dosage: 0.7 MG, BID
     Route: 050
     Dates: start: 20210409, end: 20210419
  15. TACROLIMUS. [Suspect]
     Active Substance: TACROLIMUS
     Dosage: 0.7 MG, SINGLE
     Route: 050
     Dates: start: 20210420, end: 20210420
  16. TACROLIMUS. [Suspect]
     Active Substance: TACROLIMUS
     Dosage: 0.55 MG, SINGLE
     Route: 050
     Dates: start: 20210420, end: 20210420
  17. DEXAMETHASONE. [Suspect]
     Active Substance: DEXAMETHASONE
     Indication: MYOCLONUS
     Dosage: 8 MG, SINGLE
     Route: 042
     Dates: start: 20210428, end: 20210428
  18. POTASSIUM CHLORIDE. [Concomitant]
     Active Substance: POTASSIUM CHLORIDE
     Dosage: UNK
     Dates: start: 2012
  19. PREDNISOLONE. [Suspect]
     Active Substance: PREDNISOLONE
     Dosage: 8.7 MG, QD, ORAL SOLUTION
     Route: 050
     Dates: start: 20210326, end: 20210408
  20. TACROLIMUS. [Suspect]
     Active Substance: TACROLIMUS
     Dosage: 1 MG, BID
     Route: 050
     Dates: start: 20210316, end: 20210324
  21. TACROLIMUS. [Suspect]
     Active Substance: TACROLIMUS
     Dosage: 0.8 MG, SINGLE
     Route: 050
     Dates: start: 20210325, end: 20210325
  22. TRIMETHOPRIM/SULFAMETHOXAZOLE [Suspect]
     Active Substance: SULFAMETHOXAZOLE\TRIMETHOPRIM
     Indication: PNEUMOCYSTIS JIROVECII PNEUMONIA
     Dosage: 123.2 MG, 3X/WEEKLY
     Route: 050
     Dates: start: 20210309, end: 20210325
  23. DEXAMETHASONE. [Suspect]
     Active Substance: DEXAMETHASONE
     Indication: ANAESTHESIA
     Dosage: 2 MG, QD
     Dates: start: 20210522
  24. DEXAMETHASONE. [Suspect]
     Active Substance: DEXAMETHASONE
     Indication: SOMNOLENCE
  25. EMLA [Concomitant]
     Active Substance: LIDOCAINE\PRILOCAINE
     Dosage: UNK
     Dates: start: 200902
  26. OMEPRAZOLE. [Concomitant]
     Active Substance: OMEPRAZOLE
     Indication: DYSPHAGIA
     Dosage: UNK
     Dates: start: 2008
  27. SIROLIMUS. [Suspect]
     Active Substance: SIROLIMUS
     Dosage: 0.1 MG, SINGLE
     Route: 050
     Dates: start: 20210427, end: 20210427
  28. SIROLIMUS. [Suspect]
     Active Substance: SIROLIMUS
     Dosage: 0.1 MG, BID
     Route: 050
     Dates: start: 20210428
  29. TACROLIMUS. [Suspect]
     Active Substance: TACROLIMUS
     Dosage: 0.6 MG, SINGLE
     Route: 050
     Dates: start: 20210408, end: 20210408
  30. IBUPROFEN. [Concomitant]
     Active Substance: IBUPROFEN
     Dosage: UNK
     Dates: start: 201208
  31. GABAPENTIN. [Concomitant]
     Active Substance: GABAPENTIN
     Dosage: UNK
     Dates: start: 2014
  32. ALBUTEROL HFA [Concomitant]
     Active Substance: ALBUTEROL SULFATE
     Dosage: UNK
     Dates: start: 2017
  33. BUDESONIDE. [Concomitant]
     Active Substance: BUDESONIDE
     Dosage: UNK
     Dates: start: 2017
  34. MENAQUINONE?7 [Concomitant]
     Dosage: UNK
     Dates: start: 2012
  35. SIROLIMUS. [Suspect]
     Active Substance: SIROLIMUS
     Dosage: 0.12 MG, SINGLE
     Route: 050
     Dates: start: 20210427, end: 20210427
  36. TACROLIMUS. [Suspect]
     Active Substance: TACROLIMUS
     Dosage: 0.8 MG, BID
     Route: 050
     Dates: start: 20210326, end: 20210404
  37. TRIMETHOPRIM/SULFAMETHOXAZOLE [Suspect]
     Active Substance: SULFAMETHOXAZOLE\TRIMETHOPRIM
     Dosage: 124 MG, 3XWEEKLY
     Route: 050
     Dates: start: 20210326
  38. FAMOTIDINE. [Concomitant]
     Active Substance: FAMOTIDINE
     Dosage: UNK
     Dates: start: 202009
  39. UBIDECARENONE. [Concomitant]
     Active Substance: UBIDECARENONE
     Dosage: UNK
     Dates: start: 2014
  40. ONDANSETRON HYDROCHLORIDE. [Concomitant]
     Active Substance: ONDANSETRON HYDROCHLORIDE
     Dosage: UNK
     Dates: start: 2012
  41. PREDNISOLONE. [Suspect]
     Active Substance: PREDNISOLONE
     Dosage: 4.8 MG, QD,  ORAL SOLUTION
     Route: 050
     Dates: start: 20210409, end: 20210517
  42. SIROLIMUS. [Suspect]
     Active Substance: SIROLIMUS
     Indication: IMMUNOSUPPRESSION
     Dosage: 0.92 MG, TID
     Route: 050
     Dates: start: 20210309, end: 20210309
  43. SIROLIMUS. [Suspect]
     Active Substance: SIROLIMUS
     Dosage: 0.1 MG, BID
     Route: 050
     Dates: start: 20210313, end: 20210319
  44. TACROLIMUS. [Suspect]
     Active Substance: TACROLIMUS
     Indication: IMMUNOSUPPRESSION
     Dosage: 1.25 MG, BID
     Route: 050
     Dates: start: 20210312, end: 20210314
  45. TACROLIMUS. [Suspect]
     Active Substance: TACROLIMUS
     Dosage: 0.55 MG, BID
     Route: 050
     Dates: start: 20210421
  46. DEXAMETHASONE. [Suspect]
     Active Substance: DEXAMETHASONE
     Indication: NERVE INJURY
  47. MONTELUKAST SODIUM. [Concomitant]
     Active Substance: MONTELUKAST SODIUM
     Dosage: UNK
     Dates: start: 2017
  48. CETIRIZINE [Concomitant]
     Active Substance: CETIRIZINE HYDROCHLORIDE
     Dosage: UNK
     Dates: start: 2017
  49. LACTOBACILLUS ACIDOPHILUS [Concomitant]
     Active Substance: LACTOBACILLUS ACIDOPHILUS
     Dosage: UNK
     Dates: start: 20091119
  50. PREDNISOLONE. [Suspect]
     Active Substance: PREDNISOLONE
     Indication: IMMUNOSUPPRESSION
     Dosage: 12.3 MG, QD, ORAL SOLUTION
     Route: 050
     Dates: start: 20210312, end: 20210325
  51. SIROLIMUS. [Suspect]
     Active Substance: SIROLIMUS
     Dosage: 0.12 MG, SINGLE
     Route: 050
     Dates: start: 20210420, end: 20210420
  52. TACROLIMUS. [Suspect]
     Active Substance: TACROLIMUS
     Dosage: 1 MG, SINGLE
     Route: 050
     Dates: start: 20210325, end: 20210325
  53. HEPARIN [Concomitant]
     Active Substance: HEPARIN SODIUM
     Dosage: UNK
     Dates: start: 2011
  54. SIROLIMUS. [Suspect]
     Active Substance: SIROLIMUS
     Dosage: 0.12 MG, BID
     Route: 050
     Dates: start: 20210421, end: 20210426
  55. IMMUNOGLOBULIN HUMAN NORMAL [Concomitant]
     Active Substance: HUMAN IMMUNOGLOBULIN G
     Dosage: UNK
     Dates: start: 201208
  56. IDURSULFASE [Concomitant]
     Active Substance: IDURSULFASE
     Dosage: UNK
     Dates: start: 2011
  57. PREDNISOLONE. [Suspect]
     Active Substance: PREDNISOLONE
     Dosage: 13.5 MG, QD,  ORAL SOLUTION
     Route: 050
     Dates: start: 20210518, end: 20210521

REACTIONS (9)
  - Dysphagia [Not Recovered/Not Resolved]
  - Somnolence [Recovered/Resolved]
  - Nerve injury [Recovered/Resolved]
  - Periorbital oedema [Recovered/Resolved]
  - Myoclonus [Recovered/Resolved]
  - Oral candidiasis [Not Recovered/Not Resolved]
  - Abdominal pain [Not Recovered/Not Resolved]
  - Stomatitis [Recovering/Resolving]
  - Nerve injury [Recovered/Resolved]

NARRATIVE: CASE EVENT DATE: 20210406
